FAERS Safety Report 14861832 (Version 1)
Quarter: 2018Q2

REPORT INFORMATION
  Report Type: Spontaneous
  Country: US (occurrence: US)
  Receive Date: 20180425
  Receipt Date: 20180425
  Transmission Date: 20180711
  Serious: Yes (Other)
  Sender: FDA-Public Use
  Company Number: None

PATIENT
  Age: 66 Year
  Sex: Female
  Weight: 57.61 kg

DRUGS (19)
  1. B-50 [Concomitant]
  2. MOVE FREE W/MSM [Concomitant]
  3. AMONIUM AD [Concomitant]
  4. FLONASE [Concomitant]
     Active Substance: FLUTICASONE PROPIONATE
  5. MELATONIN [Concomitant]
     Active Substance: MELATONIN
  6. BACLOFEN 2% [Suspect]
     Active Substance: BACLOFEN
     Indication: HAND FRACTURE
     Route: 061
     Dates: start: 20180311, end: 20180316
  7. GABAPENTIN 6% [Suspect]
     Active Substance: GABAPENTIN
  8. TETRACAINE 3% [Suspect]
     Active Substance: TETRACAINE
  9. ACETONIDE OINTMENT [Concomitant]
     Active Substance: TRIAMCINOLONE ACETONIDE
  10. BACLOFEN 2% [Suspect]
     Active Substance: BACLOFEN
     Indication: PAIN
     Route: 061
     Dates: start: 20180311, end: 20180316
  11. 5-HTP [Concomitant]
     Active Substance: OXITRIPTAN
  12. L-LYSINE [Concomitant]
     Active Substance: LYSINE
  13. VITAMIN E [Concomitant]
     Active Substance: .ALPHA.-TOCOPHEROL
  14. DICLOFENAC 50 MG [Suspect]
     Active Substance: DICLOFENAC
  15. FLOVENT [Concomitant]
     Active Substance: FLUTICASONE PROPIONATE
  16. TRIAMCINOLONE [Concomitant]
     Active Substance: TRIAMCINOLONE
  17. VITAMIN E [Concomitant]
     Active Substance: .ALPHA.-TOCOPHEROL
  18. UNISOM SLEEPTABS [Concomitant]
     Active Substance: DOXYLAMINE SUCCINATE
  19. PROBIOTICS [Concomitant]
     Active Substance: PROBIOTICS NOS

REACTIONS (12)
  - Swelling [None]
  - Pruritus [None]
  - Pain [None]
  - Blister rupture [None]
  - Skin exfoliation [None]
  - Skin discolouration [None]
  - Paraesthesia [None]
  - Haemorrhage [None]
  - Joint swelling [None]
  - Urticaria [None]
  - Feeling hot [None]
  - Application site vesicles [None]

NARRATIVE: CASE EVENT DATE: 20180314
